FAERS Safety Report 25798156 (Version 1)
Quarter: 2025Q3

REPORT INFORMATION
  Report Type: Spontaneous
  Country: US (occurrence: US)
  Receive Date: 20250912
  Receipt Date: 20250912
  Transmission Date: 20251021
  Serious: Yes (Other)
  Sender: PFIZER
  Company Number: US-PFIZER INC-PV202500109537

PATIENT
  Age: 61 Year
  Sex: Female

DRUGS (2)
  1. XELJANZ [Suspect]
     Active Substance: TOFACITINIB CITRATE
     Indication: Rheumatoid arthritis
     Dosage: 5 MG, 2X/DAY
     Route: 048
     Dates: start: 2015, end: 202506
  2. XELJANZ [Suspect]
     Active Substance: TOFACITINIB CITRATE
     Dosage: 5 MG, 2X/DAY
     Route: 048
     Dates: start: 202507

REACTIONS (6)
  - Myelitis [Recovering/Resolving]
  - Cerebrospinal fluid circulation disorder [Recovering/Resolving]
  - Extremity contracture [Not Recovered/Not Resolved]
  - Arthralgia [Recovering/Resolving]
  - Depression [Not Recovered/Not Resolved]
  - Condition aggravated [Not Recovered/Not Resolved]
